FAERS Safety Report 18257351 (Version 1)
Quarter: 2020Q3

REPORT INFORMATION
  Report Type: Spontaneous
  Country: US (occurrence: US)
  Receive Date: 20200911
  Receipt Date: 20200911
  Transmission Date: 20201103
  Serious: Yes (Death)
  Sender: FDA-Public Use
  Company Number: None

PATIENT
  Age: 66 Year
  Sex: Male
  Weight: 122 kg

DRUGS (3)
  1. REMDESIVIR (EUA) (REMDESIVIR (EUA)) [Suspect]
     Active Substance: REMDESIVIR
     Indication: UPPER RESPIRATORY TRACT INFECTION
     Route: 042
     Dates: start: 20200718, end: 20200725
  2. TOCILIZUMAB (TOCILIZUMAB 20MG/ML INJ,SOLN,10ML) [Suspect]
     Active Substance: TOCILIZUMAB
     Indication: UPPER RESPIRATORY TRACT INFECTION
     Route: 042
     Dates: start: 20200723, end: 20200723
  3. REMDESIVIR (EUA) (REMDESIVIR (EUA)) [Suspect]
     Active Substance: REMDESIVIR
     Indication: COVID-19
     Route: 042
     Dates: start: 20200718, end: 20200725

REACTIONS (5)
  - Renal impairment [None]
  - Hepatic enzyme increased [None]
  - Blood urea increased [None]
  - General physical health deterioration [None]
  - Blood creatinine increased [None]

NARRATIVE: CASE EVENT DATE: 20200725
